FAERS Safety Report 18627135 (Version 2)
Quarter: 2021Q1

REPORT INFORMATION
  Report Type: Spontaneous
  Country: US (occurrence: US)
  Receive Date: 20201217
  Receipt Date: 20210105
  Transmission Date: 20210419
  Serious: No
  Sender: FDA-Public Use
  Company Number: US-HORIZON-2020HZN02383

PATIENT
  Age: 58 Year
  Sex: Female

DRUGS (8)
  1. LOSARTANLOSARTAN [Concomitant]
  2. TEPEZZA [Suspect]
     Active Substance: TEPROTUMUMAB-TRBW
     Indication: ENDOCRINE OPHTHALMOPATHY
     Dosage: UNKNOWN DOSE Q 3 WEEKS
  3. METFROMINMETFORMIN [Concomitant]
  4. ESCITALOPRAMESCITALOPRAM [Concomitant]
  5. VITAMIN DCHOLECALCIFEROL [Concomitant]
  6. LEVOTHYROXINELEVOTHYROXINE [Concomitant]
  7. TEPEZZA [Suspect]
     Active Substance: TEPROTUMUMAB-TRBW
     Indication: ENDOCRINE OPHTHALMOPATHY
  8. OMEPRAZOLEOMEPRAZOLE [Concomitant]

REACTIONS (3)
  - Diabetes mellitus [Unknown]
  - Blood urine present [Recovering/Resolving]
  - Rash [Recovering/Resolving]
